FAERS Safety Report 11492104 (Version 2)
Quarter: 2015Q3

REPORT INFORMATION
  Report Type: Report from Study
  Country: IN (occurrence: IN)
  Receive Date: 20150910
  Receipt Date: 20150915
  Transmission Date: 20151125
  Serious: Yes (Other)
  Sender: FDA-Public Use
  Company Number: PHHY2015IN108356

PATIENT
  Sex: Female
  Weight: 86 kg

DRUGS (13)
  1. GALVUS [Suspect]
     Active Substance: VILDAGLIPTIN
     Dosage: 50 MG, QD (5 TO 6 MONTHS AGO)
     Route: 048
  2. GALVUS [Suspect]
     Active Substance: VILDAGLIPTIN
     Dosage: 50 MG, BID (1.5 TO 1 YEAR AGO)
     Route: 048
  3. INSUGEN [Concomitant]
     Indication: DIABETES MELLITUS
     Dosage: 1 DF, (30/70) (40IU), QD
     Route: 058
  4. ZABESTA [Concomitant]
     Indication: BLOOD PRESSURE ABNORMAL
     Dosage: 5 MG, QD
     Route: 048
  5. TIDE PLUS [Concomitant]
     Indication: BLOOD PRESSURE ABNORMAL
     Dosage: 20 MG, QD
     Route: 048
  6. DIOVAN [Suspect]
     Active Substance: VALSARTAN
     Indication: BLOOD PRESSURE ABNORMAL
     Dosage: 0.5 DF, QD
     Route: 048
  7. ZABESTA AM [Concomitant]
     Indication: BLOOD PRESSURE ABNORMAL
     Dosage: 5 MG, QD
     Route: 048
  8. MINIPRESS XL [Concomitant]
     Active Substance: PRAZOSIN HYDROCHLORIDE
     Indication: BLOOD PRESSURE ABNORMAL
     Dosage: 5 MG, BID
     Route: 048
  9. GALVUS [Suspect]
     Active Substance: VILDAGLIPTIN
     Indication: DIABETES MELLITUS
     Dosage: 50 MG, UNK (6 TO 7 YEARS AGO)
     Route: 048
  10. GALVUS [Suspect]
     Active Substance: VILDAGLIPTIN
     Dosage: 50 MG, QD (2.5 TO 3 YEARS AGO)
     Route: 048
  11. SYSTANE ULTRA [Concomitant]
     Active Substance: POLYETHYLENE GLYCOL 400\PROPYLENE GLYCOL
     Indication: EYE DISORDER
     Dosage: FOUR TIMES AS REPORTED
     Route: 065
  12. CONCOR [Concomitant]
     Active Substance: BISOPROLOL FUMARATE
     Indication: BLOOD PRESSURE ABNORMAL
     Dosage: 5 MG, QD
     Route: 065
  13. INSUGEN R [Concomitant]
     Indication: DIABETES MELLITUS
     Dosage: 1 DF (20 IU, 20 IU) BID
     Route: 058

REACTIONS (10)
  - Weight increased [Unknown]
  - Abdominal pain [Unknown]
  - Blood potassium increased [Recovered/Resolved]
  - Blood creatinine increased [Recovered/Resolved]
  - Retinal tear [Recovering/Resolving]
  - Retinal haemorrhage [Recovered/Resolved]
  - Blood pressure increased [Unknown]
  - Tremor [Not Recovered/Not Resolved]
  - Blood glucose increased [Unknown]
  - Diabetes mellitus inadequate control [Not Recovered/Not Resolved]
